FAERS Safety Report 18598767 (Version 4)
Quarter: 2025Q3

REPORT INFORMATION
  Report Type: Spontaneous
  Country: EU (occurrence: EU)
  Receive Date: 20201210
  Receipt Date: 20250701
  Transmission Date: 20251020
  Serious: Yes (Death, Life-Threatening, Hospitalization, Other)
  Sender: AUROBINDO
  Company Number: EU-GLAXOSMITHKLINE-FR2020GSK234274

PATIENT
  Age: 26 Year
  Sex: Female

DRUGS (15)
  1. VALACYCLOVIR HYDROCHLORIDE [Suspect]
     Active Substance: VALACYCLOVIR HYDROCHLORIDE
     Indication: Antiviral prophylaxis
     Route: 065
  2. CEFOTAXIME [Suspect]
     Active Substance: CEFOTAXIME SODIUM
     Indication: Antibiotic prophylaxis
     Route: 065
  3. CEFOTAXIME [Suspect]
     Active Substance: CEFOTAXIME SODIUM
     Indication: Encephalitis cytomegalovirus
  4. AZATHIOPRINE [Suspect]
     Active Substance: AZATHIOPRINE
     Indication: Enterocolitis haemorrhagic
     Route: 065
  5. AZATHIOPRINE [Suspect]
     Active Substance: AZATHIOPRINE
     Indication: Colitis
  6. AZATHIOPRINE [Suspect]
     Active Substance: AZATHIOPRINE
     Indication: Immunosuppressant drug therapy
  7. FOSCAVIR [Suspect]
     Active Substance: FOSCARNET SODIUM
     Indication: Disseminated cytomegaloviral infection
     Route: 065
  8. FOSCAVIR [Suspect]
     Active Substance: FOSCARNET SODIUM
     Indication: Encephalitis cytomegalovirus
  9. GANCICLOVIR [Suspect]
     Active Substance: GANCICLOVIR
     Indication: Disseminated cytomegaloviral infection
     Route: 065
  10. GANCICLOVIR [Suspect]
     Active Substance: GANCICLOVIR
     Indication: Encephalitis cytomegalovirus
  11. MESALAMINE [Suspect]
     Active Substance: MESALAMINE
     Indication: Colitis
     Route: 065
  12. MESALAMINE [Suspect]
     Active Substance: MESALAMINE
     Indication: Enterocolitis haemorrhagic
  13. MESALAMINE [Suspect]
     Active Substance: MESALAMINE
     Indication: Immunosuppressant drug therapy
  14. COTRIMOXAZOLE [Suspect]
     Active Substance: SULFAMETHOXAZOLE\TRIMETHOPRIM
     Indication: Antibiotic prophylaxis
     Route: 065
  15. COTRIMOXAZOLE [Suspect]
     Active Substance: SULFAMETHOXAZOLE\TRIMETHOPRIM
     Indication: Encephalitis cytomegalovirus

REACTIONS (15)
  - Encephalitis cytomegalovirus [Fatal]
  - Brain death [Fatal]
  - Exposure during pregnancy [Fatal]
  - Neurological decompensation [Unknown]
  - Hydrocephalus [Unknown]
  - Brain oedema [Unknown]
  - Disseminated cytomegaloviral infection [Unknown]
  - Cerebral haemorrhage [Unknown]
  - Central nervous system necrosis [Unknown]
  - Cerebral venous thrombosis [Unknown]
  - Intracranial pressure increased [Unknown]
  - Hemiparesis [Unknown]
  - Condition aggravated [Unknown]
  - Headache [Unknown]
  - Live birth [Unknown]
